FAERS Safety Report 7288258-5 (Version None)
Quarter: 2011Q1

REPORT INFORMATION
  Report Type: 
  Country: None (occurrence: None)
  Receive Date: 20110211
  Receipt Date: 20110131
  Transmission Date: 20110831
  Serious: Yes (Hospitalization)
  Sender: FDA-Public Use
  Company Number: CO-ROCHE-743566

PATIENT
  Sex: Male

DRUGS (2)
  1. PREDNISOLONE [Concomitant]
     Dosage: FREQUENCY EVERYDAY
     Route: 048
  2. CELLCEPT [Suspect]
     Dosage: FREQUENCY: EVERYDAY
     Route: 048
     Dates: start: 20080930

REACTIONS (2)
  - PNEUMONIA [None]
  - TRANSPLANT REJECTION [None]
